FAERS Safety Report 9308404 (Version 2)
Quarter: 2013Q3

REPORT INFORMATION
  Report Type: Spontaneous
  Country: US (occurrence: US)
  Receive Date: 20130524
  Receipt Date: 20130709
  Transmission Date: 20140515
  Serious: No
  Sender: FDA-Public Use
  Company Number: US-009507513-1305USA008978

PATIENT
  Age: 19 Year
  Sex: Female
  Weight: 90 kg

DRUGS (3)
  1. PEGINTRON [Suspect]
     Indication: HEPATITIS C
     Dosage: 64 MICROGRAM, QW, REDIPEN
     Route: 058
     Dates: start: 20130220
  2. REBETOL [Suspect]
     Dosage: UNK
     Route: 048
  3. IBUPROFEN [Concomitant]
     Indication: HEADACHE
     Dosage: PRN

REACTIONS (7)
  - Pain [Unknown]
  - Headache [Unknown]
  - White blood cell count decreased [Unknown]
  - Alopecia [Unknown]
  - Weight decreased [Unknown]
  - Nausea [Unknown]
  - Fatigue [Unknown]
